FAERS Safety Report 24366461 (Version 1)
Quarter: 2024Q3

REPORT INFORMATION
  Report Type: Report from Study
  Country: US (occurrence: US)
  Receive Date: 20240926
  Receipt Date: 20240926
  Transmission Date: 20241017
  Serious: Yes (Hospitalization, Other)
  Sender: EISAI
  Company Number: US-Eisai-EC-2024-174649

PATIENT
  Age: 68 Year
  Sex: Female

DRUGS (15)
  1. LENVIMA [Suspect]
     Active Substance: LENVATINIB
     Indication: Renal cancer
     Dosage: DOSE AND FREQUENCY UNKNOWN
     Route: 048
     Dates: end: 2024
  2. LENVIMA [Suspect]
     Active Substance: LENVATINIB
     Dosage: DOSE AND FREQUENCY UNKNOWN
     Route: 048
     Dates: start: 2024, end: 20240915
  3. CABOMETYX [Suspect]
     Active Substance: CABOZANTINIB S-MALATE
     Indication: Renal cancer
     Dates: start: 20230811, end: 2024
  4. CABOMETYX [Suspect]
     Active Substance: CABOZANTINIB S-MALATE
     Dates: start: 2024, end: 20240903
  5. EVEROLIMUS [Suspect]
     Active Substance: EVEROLIMUS
     Indication: Renal cancer
     Dosage: DOSE AND FREQUENCY UNKNOWN
     Dates: end: 2024
  6. EVEROLIMUS [Suspect]
     Active Substance: EVEROLIMUS
     Dosage: DOSE AND FREQUENCY UNKNOWN
     Dates: start: 2024, end: 20240915
  7. HYDROCHLOROTHIAZIDE [Suspect]
     Active Substance: HYDROCHLOROTHIAZIDE
     Indication: Product used for unknown indication
     Dosage: UNKNOWN DOSE, FREQUENCY, START DATE
  8. GLUCOSAMINE [Concomitant]
     Active Substance: GLUCOSAMINE
     Dosage: DOSE AND FREQUENCY UNKNOWN
  9. MELATONIN [Concomitant]
     Active Substance: MELATONIN
     Dosage: DOSE AND FREQUENCY UNKNOWN
  10. LISINOPRIL [Concomitant]
     Active Substance: LISINOPRIL
     Dosage: DOSE AND FREQUENCY UNKNOWN
  11. CALCIUM [Concomitant]
     Active Substance: CALCIUM
     Dosage: DOSE AND FREQUENCY UNKNOWN
  12. CLOBETASOL [Concomitant]
     Active Substance: CLOBETASOL
     Dosage: DOSE AND FREQUENCY UNKNOWN
  13. CYCLOBENZAPRINE [Concomitant]
     Active Substance: CYCLOBENZAPRINE
     Dosage: DOSE AND FREQUENCY UNKNOWN
  14. CENTRIUM SILVER [Concomitant]
     Dosage: DOSE AND FREQUENCY UNKNOWN
  15. FLONASE [Concomitant]
     Active Substance: FLUTICASONE PROPIONATE
     Dosage: DOSE AND FREQUENCY UNKNOWN

REACTIONS (17)
  - Hyponatraemic seizure [Unknown]
  - Hypertension [Unknown]
  - Headache [Unknown]
  - Uveitis [Unknown]
  - Diarrhoea [Unknown]
  - Nausea [Unknown]
  - Asthenia [Unknown]
  - Flatulence [Unknown]
  - Weight decreased [Unknown]
  - Eating disorder [Unknown]
  - Gastrooesophageal reflux disease [Unknown]
  - Dry mouth [Unknown]
  - Hyponatraemia [Unknown]
  - Constipation [Unknown]
  - Fatigue [Unknown]
  - Amnesia [Unknown]
  - Pain [Unknown]

NARRATIVE: CASE EVENT DATE: 20240101
